FAERS Safety Report 20044265 (Version 1)
Quarter: 2021Q4

REPORT INFORMATION
  Report Type: Spontaneous
  Country: US (occurrence: None)
  Receive Date: 20211108
  Receipt Date: 20211108
  Transmission Date: 20220303
  Serious: No
  Sender: FDA-Public Use
  Company Number: 2021A796549

PATIENT
  Age: 950 Month
  Sex: Female
  Weight: 52.2 kg

DRUGS (1)
  1. TAGRISSO [Suspect]
     Active Substance: OSIMERTINIB
     Indication: Lung neoplasm malignant
     Route: 048
     Dates: start: 202007

REACTIONS (2)
  - Cough [Unknown]
  - Pleural effusion [Unknown]

NARRATIVE: CASE EVENT DATE: 20210801
